FAERS Safety Report 9099080 (Version 2)
Quarter: 2013Q1

REPORT INFORMATION
  Report Type: Spontaneous
  Country: CA (occurrence: CA)
  Receive Date: 20130214
  Receipt Date: 20130228
  Transmission Date: 20140127
  Serious: Yes (Disabling, Other)
  Sender: FDA-Public Use
  Company Number: CA-ROCHE-1191150

PATIENT
  Age: 68 Year
  Sex: Male

DRUGS (3)
  1. XOLAIR [Suspect]
     Indication: ASTHMA
     Route: 058
     Dates: start: 20120315
  2. XOLAIR [Suspect]
     Route: 058
     Dates: start: 201208, end: 201208
  3. HYDROXYCHLOROQUINE [Concomitant]

REACTIONS (1)
  - Rheumatoid arthritis [Recovering/Resolving]
